FAERS Safety Report 4519739-2 (Version None)
Quarter: 2004Q4

REPORT INFORMATION
  Report Type: 
  Country: None (occurrence: None)
  Receive Date: 20041207
  Receipt Date: 20041112
  Transmission Date: 20050328
  Serious: Yes (Hospitalization)
  Sender: FDA-Public Use
  Company Number: FR-BRISTOL-MYERS SQUIBB COMPANY-12769253

PATIENT
  Age: 67 Year
  Sex: Female

DRUGS (7)
  1. FOZITEC [Suspect]
     Dosage: DISCONTINUED BETW 29-SEP-2004 AND 02-OCT-2004, REPLACED BY TRIATEC
     Route: 048
     Dates: end: 20040101
  2. COLCHIMAX [Suspect]
     Dosage: 1 DOSEAGE FORM 1 IN 1 D WAS DOUBLED ON 24-SEP-2004
     Route: 048
     Dates: end: 20040925
  3. KARDEGIC [Suspect]
     Dosage: DISCONTINUED BETW 29-SEP-2004 AND 02-OCT-2004
     Route: 048
     Dates: end: 20040101
  4. TAHOR [Suspect]
     Dosage: DISCONTINUED BETW 29-SEP-2004 AND 02-OCT-2004, REPLACED BY VASTEN
     Route: 048
     Dates: end: 20040101
  5. ZYLORIC [Suspect]
     Dosage: DISCONTINUED BETW 29-SEP-2004 AND 02-OCT-2004
     Route: 048
     Dates: end: 20040101
  6. KREDEX [Concomitant]
     Route: 048
  7. LASILIX [Concomitant]

REACTIONS (4)
  - DISSEMINATED INTRAVASCULAR COAGULATION [None]
  - PHAEOCHROMOCYTOMA [None]
  - PURPURA [None]
  - RENAL FAILURE [None]
